FAERS Safety Report 8876463 (Version 2)
Quarter: 2012Q4

REPORT INFORMATION
  Report Type: 
  Country: US (occurrence: US)
  Receive Date: 20121031
  Receipt Date: 20121210
  Transmission Date: 20130627
  Serious: Yes (Hospitalization)
  Sender: FDA-Public Use
  Company Number: US-BAYER-2012-113005

PATIENT
  Age: 31 Year
  Sex: Female

DRUGS (13)
  1. YAZ [Suspect]
  2. ZYRTEC [Concomitant]
     Dosage: 10 mg,daily
  3. NEXIUM [Concomitant]
     Dosage: 40 mg, daily
  4. MIRALAX [Concomitant]
     Dosage: daily
  5. HYDROCODONE [Concomitant]
     Dosage: UNK UNK, PRN
  6. LEVAQUIN [Concomitant]
     Indication: CELLULITIS
  7. CLARITIN [Concomitant]
  8. FLAGYL [Concomitant]
  9. TEMOVATE [Concomitant]
  10. CLINDAMYCIN [Concomitant]
     Dosage: 600 mg, TID
     Route: 042
  11. VICODIN [Concomitant]
     Indication: PAIN
  12. CETIRIZIN [Concomitant]
  13. CIPRO [Concomitant]
     Dosage: 500 mg, BID
     Route: 048

REACTIONS (2)
  - Thrombophlebitis superficial [Recovering/Resolving]
  - Subclavian vein thrombosis [None]
